FAERS Safety Report 4614019-9 (Version None)
Quarter: 2005Q1

REPORT INFORMATION
  Report Type: 
  Country: None (occurrence: None)
  Receive Date: 20050321
  Receipt Date: 20050311
  Transmission Date: 20050727
  Serious: Yes (Hospitalization)
  Sender: FDA-Public Use
  Company Number: US-ROCHE-398302

PATIENT
  Age: 43 Year
  Sex: Male

DRUGS (3)
  1. RIBAVIRIN [Suspect]
     Indication: HEPATITIS C VIRUS
     Route: 065
  2. PEG-INTERFERON ALFA 2A (RO 25-8310) [Suspect]
     Indication: HEPATITIS C VIRUS
     Route: 065
  3. BLINDED POLYENYLPHOSPHATIDYLCHOLINE [Suspect]
     Indication: HEPATITIS C VIRUS
     Route: 048

REACTIONS (1)
  - MIGRAINE [None]
